FAERS Safety Report 6878038-4 (Version None)
Quarter: 2010Q3

REPORT INFORMATION
  Report Type: 
  Country: None (occurrence: None)
  Receive Date: 20100727
  Receipt Date: 20100712
  Transmission Date: 20110219
  Serious: No
  Sender: FDA-Public Use
  Company Number: US-B.I. PHARMACEUTICALS,INC./RIDGEFIELD-2010-BP-07844BP

PATIENT
  Age: 66 Year
  Sex: Male

DRUGS (3)
  1. FLOMAX [Suspect]
     Indication: BENIGN PROSTATIC HYPERPLASIA
     Dosage: 0.4 MG
     Route: 048
     Dates: start: 20100101
  2. ZYRTEC [Concomitant]
     Indication: MULTIPLE ALLERGIES
  3. NEXIUM [Concomitant]

REACTIONS (5)
  - DIZZINESS [None]
  - NASAL CONGESTION [None]
  - RHINORRHOEA [None]
  - SEMEN VOLUME DECREASED [None]
  - SNEEZING [None]
